FAERS Safety Report 25572288 (Version 1)
Quarter: 2025Q3

REPORT INFORMATION
  Report Type: Spontaneous
  Country: US (occurrence: US)
  Receive Date: 20250717
  Receipt Date: 20250717
  Transmission Date: 20251020
  Serious: No
  Sender: LEADING PHARMA
  Company Number: US-LEADINGPHARMA-US-2025LEASPO00119

PATIENT
  Age: 78 Year
  Sex: Female
  Weight: 115 kg

DRUGS (1)
  1. IMIPRAMINE HYDROCHLORIDE [Suspect]
     Active Substance: IMIPRAMINE HYDROCHLORIDE
     Indication: Depression
     Route: 048

REACTIONS (2)
  - Dark circles under eyes [Not Recovered/Not Resolved]
  - Skin discolouration [Not Recovered/Not Resolved]
